FAERS Safety Report 8033957-0 (Version None)
Quarter: 2011Q4

REPORT INFORMATION
  Report Type: 
  Country: None (occurrence: None)
  Receive Date: 20111202
  Receipt Date: 20110720
  Transmission Date: 20120403
  Serious: Yes (Other)
  Sender: FDA-Public Use
  Company Number: WAES 0702USA01299

PATIENT
  Age: 64 Year
  Sex: Female

DRUGS (9)
  1. FOSAMAX [Suspect]
     Indication: OSTEOPOROSIS
     Dosage: 70 MG/PO
     Route: 048
     Dates: start: 20020503, end: 20060214
  2. CALCIUM (UNSPECIFIED) [Concomitant]
  3. FOSAMAX PLUS D [Suspect]
     Indication: OSTEOPOROSIS
     Dosage: 70 MG/PO
     Route: 048
     Dates: start: 20060531, end: 20061111
  4. FOSAMAX [Suspect]
     Indication: OSTEOPOROSIS
     Dosage: 5 MG/PO
     Route: 048
     Dates: start: 19991204, end: 20010213
  5. BONIVA [Concomitant]
  6. FOSAMAX [Suspect]
     Indication: OSTEOPOROSIS
     Dosage: PO ; 10 MG/PO ; PO
     Route: 048
     Dates: start: 19990101
  7. FOSAMAX [Suspect]
     Indication: OSTEOPOROSIS
     Dosage: PO ; 10 MG/PO ; PO
     Route: 048
     Dates: start: 20020502
  8. FOSAMAX [Suspect]
     Indication: OSTEOPOROSIS
     Dosage: PO ; 10 MG/PO ; PO
     Route: 048
     Dates: end: 20060614
  9. LIPITOR [Concomitant]

REACTIONS (17)
  - DUODENITIS [None]
  - GASTRIC ULCER [None]
  - OSTEONECROSIS OF JAW [None]
  - ULCER [None]
  - IRRITABLE BOWEL SYNDROME [None]
  - GASTRITIS [None]
  - GASTROINTESTINAL EROSION [None]
  - NON-CARDIAC CHEST PAIN [None]
  - HYPERLIPIDAEMIA [None]
  - GASTROOESOPHAGEAL REFLUX DISEASE [None]
  - DIVERTICULUM [None]
  - HAEMORRHOIDS [None]
  - DERMATITIS CONTACT [None]
  - NODULE [None]
  - ANXIETY [None]
  - HIATUS HERNIA [None]
  - PEPTIC ULCER [None]
